FAERS Safety Report 4880573-5 (Version None)
Quarter: 2006Q1

REPORT INFORMATION
  Report Type: 
  Country: None (occurrence: None)
  Receive Date: 20060113
  Receipt Date: 20041127
  Transmission Date: 20060701
  Serious: Yes (Life-Threatening, Hospitalization, Disabling)
  Sender: FDA-Public Use
  Company Number: US-MERCK-0412USA00037

PATIENT
  Age: 73 Year
  Sex: Female
  Weight: 92 kg

DRUGS (4)
  1. ZOCOR [Suspect]
     Indication: HYPERCHOLESTEROLAEMIA
     Route: 048
     Dates: start: 20030401, end: 20040328
  2. ZOCOR [Suspect]
     Indication: HYPERLIPIDAEMIA
     Route: 048
     Dates: start: 20030401, end: 20040328
  3. LIPITOR [Concomitant]
     Route: 065
  4. LOPID [Suspect]
     Indication: HYPERCHOLESTEROLAEMIA
     Route: 065
     Dates: start: 20040301, end: 20040301

REACTIONS (10)
  - CONSTIPATION [None]
  - HAEMODIALYSIS [None]
  - HERPES ZOSTER [None]
  - HYPOTHYROIDISM [None]
  - MYOPATHY [None]
  - MYOSITIS [None]
  - PULMONARY EMBOLISM [None]
  - PYREXIA [None]
  - RENAL FAILURE ACUTE [None]
  - RHABDOMYOLYSIS [None]
